FAERS Safety Report 20639347 (Version 4)
Quarter: 2022Q2

REPORT INFORMATION
  Report Type: Spontaneous
  Country: CN (occurrence: CN)
  Receive Date: 20220326
  Receipt Date: 20220623
  Transmission Date: 20220720
  Serious: Yes (Hospitalization, Other)
  Sender: FDA-Public Use
  Company Number: CN-Accord-258710

PATIENT
  Age: 73 Year
  Sex: Female
  Weight: 47.00 kg

DRUGS (3)
  1. DOCETAXEL [Suspect]
     Active Substance: DOCETAXEL
     Indication: Breast cancer metastatic
     Dosage: Q3W
     Route: 041
     Dates: start: 20211117, end: 20220307
  2. TRASTUZUMAB [Suspect]
     Active Substance: TRASTUZUMAB
     Indication: Breast cancer metastatic
     Dosage: STRENGTH: 150 MG, Q3W
     Route: 041
     Dates: start: 20211117, end: 20211117
  3. PYROTINIB [Suspect]
     Active Substance: PYROTINIB
     Indication: Breast cancer metastatic
     Dosage: QD
     Route: 048
     Dates: start: 20211117, end: 20220217

REACTIONS (2)
  - Spinal compression fracture [Recovered/Resolved]
  - Condition aggravated [Recovered/Resolved]

NARRATIVE: CASE EVENT DATE: 20220302
